FAERS Safety Report 6504056-1 (Version None)
Quarter: 2009Q4

REPORT INFORMATION
  Report Type: 
  Country: None (occurrence: None)
  Receive Date: 20091216
  Receipt Date: 20091216
  Transmission Date: 20100525
  Serious: Yes (Life-Threatening, Hospitalization)
  Sender: FDA-Public Use
  Company Number: None

PATIENT
  Age: 94 Year
  Sex: Male
  Weight: 62.46 kg

DRUGS (1)
  1. DIGOXIN [Suspect]
     Indication: CARDIAC FAILURE CONGESTIVE
     Dosage: 0.125 MG EVERY DAY PO
     Route: 048
     Dates: start: 20081114, end: 20090212

REACTIONS (6)
  - BRADYCARDIA [None]
  - CACHEXIA [None]
  - DEHYDRATION [None]
  - HYPOTHERMIA [None]
  - TACHYCARDIA [None]
  - URINARY TRACT INFECTION [None]
